FAERS Safety Report 7964276-6 (Version None)
Quarter: 2011Q4

REPORT INFORMATION
  Report Type: 
  Country: None (occurrence: None)
  Receive Date: 20111205
  Receipt Date: 20111122
  Transmission Date: 20120403
  Serious: Yes (Disabling, Other)
  Sender: FDA-Public Use
  Company Number: 1064822

PATIENT
  Age: 72 Year
  Sex: Female
  Weight: 73.0291 kg

DRUGS (16)
  1. (METOPROLOL TARTRATE INJECTION, UPS, 1 MG/ML,  5 ML VIALS (METOPROLOL) [Concomitant]
  2. GLIPIZIDE [Concomitant]
  3. SIMVASTATIN [Concomitant]
  4. SYNTHROID [Concomitant]
  5. BENADRYL [Concomitant]
  6. SODIUM CHLORIDE 0.9% INJECTION, USP (SODIUM CHLORIDE) [Concomitant]
  7. WARFARIN SODIUM [Concomitant]
  8. (FOLBIC) [Concomitant]
  9. EPINEPHRINE [Concomitant]
  10. PROZAC [Concomitant]
  11. GENTAMICIN SULFATE [Suspect]
     Indication: SEPSIS
     Dosage: 300 MG, INTRAVENOUS DRIP ; 300 MG, EVERY 48 HOURS NITRAVNEOUS DRIP ; INTRAVENOUS DRIP
     Route: 041
     Dates: start: 20101023, end: 20101028
  12. GENTAMICIN SULFATE [Suspect]
     Indication: SEPSIS
     Dosage: 300 MG, INTRAVENOUS DRIP ; 300 MG, EVERY 48 HOURS NITRAVNEOUS DRIP ; INTRAVENOUS DRIP
     Route: 041
     Dates: start: 20101001, end: 20101021
  13. ZYVOX [Concomitant]
  14. (PENICILLIN G /00000901/) [Concomitant]
  15. OMEPRAZOLE [Concomitant]
  16. DILANTIN [Concomitant]

REACTIONS (14)
  - CONTUSION [None]
  - TOXICITY TO VARIOUS AGENTS [None]
  - NERVE INJURY [None]
  - IMPAIRED DRIVING ABILITY [None]
  - DIZZINESS [None]
  - FACE INJURY [None]
  - BALANCE DISORDER [None]
  - FALL [None]
  - WOUND [None]
  - GAIT DISTURBANCE [None]
  - VISION BLURRED [None]
  - HAEMATOMA [None]
  - HYPOAESTHESIA [None]
  - HEAD INJURY [None]
